FAERS Safety Report 8088269-6 (Version None)
Quarter: 2012Q1

REPORT INFORMATION
  Report Type: 
  Country: None (occurrence: None)
  Receive Date: 20120128
  Receipt Date: 20110420
  Transmission Date: 20120608
  Serious: No
  Sender: FDA-Public Use
  Company Number: US-ABBOTT-11P-163-0721186-00

PATIENT
  Sex: Male
  Weight: 88.53 kg

DRUGS (5)
  1. HUMIRA [Suspect]
     Indication: CROHN'S DISEASE
     Dates: start: 20101201, end: 20110407
  2. IMURAN [Concomitant]
     Indication: CROHN'S DISEASE
  3. PREDNISONE TAB [Concomitant]
     Indication: CROHN'S DISEASE
  4. ASACOL [Concomitant]
     Indication: CROHN'S DISEASE
  5. NEXIUM [Concomitant]
     Indication: DYSPEPSIA

REACTIONS (4)
  - RECTAL HAEMORRHAGE [None]
  - DIARRHOEA [None]
  - LARGE INTESTINAL STRICTURE [None]
  - ABDOMINAL PAIN [None]
